FAERS Safety Report 6687981-0 (Version None)
Quarter: 2010Q2

REPORT INFORMATION
  Report Type: 
  Country: None (occurrence: None)
  Receive Date: 20100420
  Receipt Date: 20100413
  Transmission Date: 20101027
  Serious: Yes (Hospitalization, Other)
  Sender: FDA-Public Use
  Company Number: CHPA2010US06722

PATIENT
  Age: 67 Year
  Sex: Female
  Weight: 58.957 kg

DRUGS (5)
  1. 4 WAY MENTHOLATED NASAL SPRAY (NCH) [Suspect]
     Indication: HYPERSENSITIVITY
     Dosage: 1 SPRAY, QD PRN
     Route: 045
  2. 4 WAY MENTHOLATED NASAL SPRAY (NCH) [Suspect]
     Indication: SINUS DISORDER
  3. LOTREL [Concomitant]
     Dosage: UNK MG, QD
  4. METOPROLOL TARTRATE [Concomitant]
     Dosage: 50 MG, QD
  5. SYNTHROID [Concomitant]
     Indication: THYROID DISORDER
     Dosage: UNK, UNK

REACTIONS (6)
  - ACTIVITIES OF DAILY LIVING IMPAIRED [None]
  - CEREBROVASCULAR ACCIDENT [None]
  - DRUG INEFFECTIVE [None]
  - MUSCULAR WEAKNESS [None]
  - STENT PLACEMENT [None]
  - TRANSIENT ISCHAEMIC ATTACK [None]
